FAERS Safety Report 19193073 (Version 2)
Quarter: 2021Q2

REPORT INFORMATION
  Report Type: Spontaneous
  Country: IT (occurrence: IT)
  Receive Date: 20210429
  Receipt Date: 20210507
  Transmission Date: 20210717
  Serious: Yes (Other)
  Sender: FDA-Public Use
  Company Number: IT-CELLTRION INC.-2021IT005565

PATIENT

DRUGS (7)
  1. PLATINUM [Concomitant]
     Active Substance: PLATINUM
  2. VINORELBINE [Concomitant]
     Active Substance: VINORELBINE TARTRATE
     Indication: LUNG ADENOCARCINOMA STAGE IV
  3. PACLITAXEL. [Concomitant]
     Active Substance: PACLITAXEL
     Indication: LUNG ADENOCARCINOMA STAGE IV
     Dosage: UNK UNK, QWK
  4. PEMETREXED. [Concomitant]
     Active Substance: PEMETREXED
  5. POZIOTINIB [Concomitant]
     Active Substance: POZIOTINIB
     Indication: LUNG ADENOCARCINOMA STAGE IV
  6. ATEZOLIZUMAB. [Suspect]
     Active Substance: ATEZOLIZUMAB
     Indication: LUNG ADENOCARCINOMA STAGE IV
     Route: 065
  7. TRASTUZUMAB (UNKNOWN) [Suspect]
     Active Substance: TRASTUZUMAB
     Indication: LUNG ADENOCARCINOMA STAGE IV
     Route: 065

REACTIONS (7)
  - Lung neoplasm malignant [Unknown]
  - Adenocarcinoma [Unknown]
  - Drug ineffective for unapproved indication [Unknown]
  - Intentional product use issue [Unknown]
  - Off label use [Unknown]
  - Disease progression [Unknown]
  - Drug ineffective [Unknown]
